FAERS Safety Report 18810262 (Version 1)
Quarter: 2021Q1

REPORT INFORMATION
  Report Type: Spontaneous
  Country: IN (occurrence: IN)
  Receive Date: 20210129
  Receipt Date: 20210129
  Transmission Date: 20210419
  Serious: Yes (Other)
  Sender: FDA-Public Use
  Company Number: IN-FRESENIUS KABI-FK202100987

PATIENT
  Age: 24 Year
  Sex: Male

DRUGS (2)
  1. CARBOPLATIN (MANUFACTURER UNKNOWN) [Suspect]
     Active Substance: CARBOPLATIN
     Indication: TESTICULAR SEMINOMA (PURE)
     Route: 065
  2. ETOPOSIDE. [Suspect]
     Active Substance: ETOPOSIDE
     Indication: TESTICULAR SEMINOMA (PURE)
     Route: 065

REACTIONS (4)
  - Testicular necrosis [Unknown]
  - Febrile neutropenia [Recovering/Resolving]
  - Tumour lysis syndrome [Unknown]
  - Sepsis [Unknown]
